FAERS Safety Report 6232820-5 (Version None)
Quarter: 2009Q2

REPORT INFORMATION
  Report Type: 
  Country: None (occurrence: None)
  Receive Date: 20090612
  Receipt Date: 20090603
  Transmission Date: 20091009
  Serious: Yes (Other)
  Sender: FDA-Public Use
  Company Number: TRP_06272_2009

PATIENT
  Sex: Female
  Weight: 45.3597 kg

DRUGS (4)
  1. INFERGEN [Suspect]
     Indication: HEPATITIS C
     Dosage: (15 ?G QD SUBCUTANEOUS), (12 ?G QD SUBCUTANEOUS)
     Route: 058
     Dates: start: 20090210, end: 20090301
  2. INFERGEN [Suspect]
     Indication: HEPATITIS C
     Dosage: (15 ?G QD SUBCUTANEOUS), (12 ?G QD SUBCUTANEOUS)
     Route: 058
     Dates: start: 20090301
  3. RIBAVIRIN [Suspect]
     Indication: HEPATITIS C
     Dosage: SEE IMAGE
     Route: 048
     Dates: start: 20090210, end: 20090101
  4. RIBAVIRIN [Suspect]
     Indication: HEPATITIS C
     Dosage: SEE IMAGE
     Route: 048
     Dates: start: 20090101

REACTIONS (5)
  - FATIGUE [None]
  - TREATMENT NONCOMPLIANCE [None]
  - VIRAL LOAD INCREASED [None]
  - WEIGHT DECREASED [None]
  - WHITE BLOOD CELL COUNT DECREASED [None]
